FAERS Safety Report 9016946 (Version 1)
Quarter: 2013Q1

REPORT INFORMATION
  Report Type: Spontaneous
  Country: BE (occurrence: BE)
  Receive Date: 20130117
  Receipt Date: 20130117
  Transmission Date: 20140127
  Serious: Yes (Death)
  Sender: FDA-Public Use
  Company Number: BE-JNJFOC-20130107154

PATIENT
  Age: 7 Year
  Sex: Male

DRUGS (2)
  1. PERDOLAN [Suspect]
     Route: 065
  2. PERDOLAN [Suspect]
     Indication: HEADACHE
     Route: 065
     Dates: start: 20130110

REACTIONS (1)
  - Fall [Fatal]
